FAERS Safety Report 5588831-6 (Version None)
Quarter: 2008Q1

REPORT INFORMATION
  Report Type: 
  Country: None (occurrence: None)
  Receive Date: 20080111
  Receipt Date: 20080102
  Transmission Date: 20080703
  Serious: Yes (Other)
  Sender: FDA-Public Use
  Company Number: US-PFIZER INC-2008001085

PATIENT
  Sex: Female
  Weight: 88.5 kg

DRUGS (4)
  1. LYRICA [Suspect]
     Indication: FIBROMYALGIA
     Route: 048
     Dates: start: 20070101, end: 20071201
  2. LYRICA [Suspect]
     Indication: PAIN
  3. PROZAC [Concomitant]
  4. LORTAB [Concomitant]

REACTIONS (5)
  - BLISTER [None]
  - EYE SWELLING [None]
  - PAIN [None]
  - RASH [None]
  - SKIN LESION [None]
